FAERS Safety Report 4986375-3 (Version None)
Quarter: 2006Q2

REPORT INFORMATION
  Report Type: 
  Country: None (occurrence: None)
  Receive Date: 20060428
  Receipt Date: 20060424
  Transmission Date: 20061013
  Serious: Yes (Life-Threatening)
  Sender: FDA-Public Use
  Company Number: FR-GLAXOSMITHKLINE-B0421056A

PATIENT
  Age: 50 Year
  Sex: Female

DRUGS (5)
  1. BECOTIDE [Suspect]
     Indication: ASTHMA
     Dosage: 1PUFF SINGLE DOSE
     Route: 055
     Dates: start: 20060214, end: 20060214
  2. VENTOLIN [Suspect]
     Indication: ASTHMA
     Dosage: 1PUFF SINGLE DOSE
     Route: 055
     Dates: start: 20060214, end: 20060214
  3. RHINOFLUIMUCIL [Suspect]
     Indication: RHINITIS ALLERGIC
     Dosage: 2SPR SINGLE DOSE
     Route: 045
     Dates: start: 20060214, end: 20060214
  4. AMOXICILLIN [Suspect]
     Indication: BRONCHITIS
     Dosage: 1G PER DAY
     Route: 048
     Dates: start: 20060214, end: 20060214
  5. HELICIDINE [Suspect]
     Indication: BRONCHITIS
     Route: 048
     Dates: start: 20060214, end: 20060214

REACTIONS (6)
  - ANAPHYLACTIC SHOCK [None]
  - DYSPNOEA [None]
  - GENERALISED OEDEMA [None]
  - HYPOTENSION [None]
  - MALAISE [None]
  - PRURITUS [None]
